FAERS Safety Report 4870948-2 (Version None)
Quarter: 2005Q4

REPORT INFORMATION
  Report Type: 
  Country: None (occurrence: None)
  Receive Date: 20051229
  Receipt Date: 20051219
  Transmission Date: 20060501
  Serious: Yes (Other)
  Sender: FDA-Public Use
  Company Number: 2005170713

PATIENT
  Age: 60 Year
  Sex: Male

DRUGS (1)
  1. AMLODIPINE [Suspect]
     Indication: ILL-DEFINED DISORDER
     Dosage: (5 MG), ORAL
     Route: 048

REACTIONS (3)
  - AMYOTROPHIC LATERAL SCLEROSIS [None]
  - PERSONALITY DISORDER [None]
  - SPEECH DISORDER [None]
